FAERS Safety Report 4815030-5 (Version None)
Quarter: 2005Q4

REPORT INFORMATION
  Report Type: 
  Country: None (occurrence: None)
  Receive Date: 20051026
  Receipt Date: 20051011
  Transmission Date: 20060501
  Serious: Yes (Other)
  Sender: FDA-Public Use
  Company Number: GBS051018610

PATIENT
  Age: 17 Year
  Sex: Male
  Weight: 55 kg

DRUGS (1)
  1. STRATTERA [Suspect]
     Indication: ATTENTION DEFICIT/HYPERACTIVITY DISORDER
     Dosage: 60 MG
     Route: 048
     Dates: start: 20050523, end: 20050624

REACTIONS (4)
  - ATTENTION-SEEKING BEHAVIOUR [None]
  - DEPRESSION [None]
  - PARANOIA [None]
  - SUICIDAL IDEATION [None]
